FAERS Safety Report 10195293 (Version 2)
Quarter: 2014Q2

REPORT INFORMATION
  Report Type: Spontaneous
  Country: JP (occurrence: JP)
  Receive Date: 20140526
  Receipt Date: 20140630
  Transmission Date: 20141212
  Serious: Yes (Disabling)
  Sender: FDA-Public Use
  Company Number: JP-JNJFOC-20140510891

PATIENT
  Age: 84 Year
  Sex: Male

DRUGS (9)
  1. XARELTO [Suspect]
     Indication: ATRIAL FIBRILLATION
     Route: 048
     Dates: start: 201302, end: 20140331
  2. XARELTO [Suspect]
     Indication: CEREBROVASCULAR ACCIDENT PROPHYLAXIS
     Route: 048
     Dates: start: 201302, end: 20140331
  3. LANIRAPID [Concomitant]
     Route: 048
  4. NORVASC [Concomitant]
     Route: 048
     Dates: end: 20140313
  5. TAKEPRON [Concomitant]
     Route: 048
  6. FEBUXOSTAT [Concomitant]
     Route: 048
  7. SYMMETREL [Concomitant]
     Route: 048
  8. ARICEPT [Concomitant]
     Route: 048
  9. NORITREN [Concomitant]
     Route: 048

REACTIONS (3)
  - Brain stem infarction [Recovered/Resolved with Sequelae]
  - Monoparesis [Unknown]
  - Eye movement disorder [Unknown]
